FAERS Safety Report 6892823-4 (Version None)
Quarter: 2010Q3

REPORT INFORMATION
  Report Type: 
  Country: None (occurrence: None)
  Receive Date: 20100731
  Receipt Date: 20080927
  Transmission Date: 20110219
  Serious: No
  Sender: FDA-Public Use
  Company Number: US-PFIZER INC-2008070198

PATIENT
  Sex: Female
  Weight: 70.31 kg

DRUGS (6)
  1. AMLODIPINE [Suspect]
     Indication: HYPERTENSION
     Route: 048
     Dates: start: 20080609
  2. NORVASC [Suspect]
     Indication: HYPERTENSION
     Route: 048
     Dates: start: 20080609
  3. TOPROL-XL [Concomitant]
  4. DETROL LA [Concomitant]
     Dates: start: 20080601
  5. ACETYLSALICYLIC ACID SRT [Concomitant]
     Dates: start: 20050301
  6. CALCIUM CARBONATE [Concomitant]
     Dates: start: 20050301

REACTIONS (2)
  - ANOSMIA [None]
  - DYSGEUSIA [None]
